FAERS Safety Report 7450029-4 (Version None)
Quarter: 2011Q2

REPORT INFORMATION
  Report Type: 
  Country: None (occurrence: None)
  Receive Date: 20110502
  Receipt Date: 20091122
  Transmission Date: 20111010
  Serious: Yes (Death, Other)
  Sender: FDA-Public Use
  Company Number: US-BAYER-200940346NA

PATIENT
  Age: 59 Year
  Sex: Female
  Weight: 93.197 kg

DRUGS (10)
  1. CRESTOR [Concomitant]
     Dosage: 10 MG, QD
     Route: 048
  2. LASIX [Concomitant]
     Dosage: 150 MG, QD
     Route: 048
  3. CELEBREX [Concomitant]
     Dosage: 600 MG, BID
     Route: 048
  4. ACETYLSALICYLIC ACID SRT [Concomitant]
     Dosage: 81 MG, QD
     Route: 048
  5. HEPARIN [Concomitant]
     Dosage: UNK
     Dates: start: 20051109
  6. DOPAMIN [METHYLDOPA] [Concomitant]
     Dosage: UNK
     Dates: start: 20051109
  7. PROTAMINE SULFATE [Concomitant]
     Dosage: UNK
     Dates: start: 20051111
  8. TRASYLOL [Suspect]
     Indication: MITRAL VALVE REPLACEMENT
     Dosage: INITIAL DOSE OF 1 ML.
     Route: 042
     Dates: start: 20051109
  9. TRASYLOL [Suspect]
     Dosage: LOADING DOSE-199 CC OVER 30 MINUTES, THEN 50CC AN HOUR FOR 4 HOURS.
     Dates: start: 20051109
  10. VANCOMYCIN [Concomitant]
     Dosage: 1 G, UNK
     Route: 042
     Dates: start: 20051111

REACTIONS (13)
  - PAIN [None]
  - INJURY [None]
  - RENAL INJURY [None]
  - UNEVALUABLE EVENT [None]
  - RENAL IMPAIRMENT [None]
  - STRESS [None]
  - DEATH [None]
  - RENAL FAILURE [None]
  - MULTI-ORGAN FAILURE [None]
  - EMOTIONAL DISTRESS [None]
  - ANHEDONIA [None]
  - ANXIETY [None]
  - FEAR [None]
